FAERS Safety Report 20925837 (Version 1)
Quarter: 2022Q2

REPORT INFORMATION
  Report Type: Spontaneous
  Country: US (occurrence: None)
  Receive Date: 20220607
  Receipt Date: 20220607
  Transmission Date: 20220721
  Serious: No
  Sender: FDA-Public Use
  Company Number: US-Neopharma Inc-000409

PATIENT
  Weight: 72.57 kg

DRUGS (3)
  1. AUGMENTIN [Suspect]
     Active Substance: AMOXICILLIN\CLAVULANATE POTASSIUM
     Indication: Product used for unknown indication
     Route: 065
  2. LYRICA [Suspect]
     Active Substance: PREGABALIN
     Indication: Complex regional pain syndrome
     Dosage: TAKE 1 CAPSULE BY MOUTH EVERY MORNING AND 2 CAPSULES BY MOUTH EVERY EVENING
     Route: 048
     Dates: start: 20190225
  3. WELLBUTRIN [Suspect]
     Active Substance: BUPROPION HYDROCHLORIDE
     Indication: Product used for unknown indication
     Route: 065

REACTIONS (3)
  - Drug hypersensitivity [Unknown]
  - Vomiting [Unknown]
  - Diarrhoea [Unknown]
